FAERS Safety Report 7130288-8 (Version None)
Quarter: 2010Q4

REPORT INFORMATION
  Report Type: 
  Country: None (occurrence: None)
  Receive Date: 20101201
  Receipt Date: 20101123
  Transmission Date: 20110411
  Serious: Yes (Death, Disabling)
  Sender: FDA-Public Use
  Company Number: GB-PFIZER INC-2010156607

PATIENT
  Age: 87 Year
  Sex: Female
  Weight: 54 kg

DRUGS (12)
  1. ATORVASTATIN CALCIUM [Suspect]
     Indication: PROPHYLAXIS
     Dosage: 80 MG, UNK
     Route: 048
     Dates: start: 20100818, end: 20101024
  2. ACETYLSALICYLIC ACID [Concomitant]
     Indication: CARDIAC FAILURE CONGESTIVE
     Dosage: 75 MG, UNK
     Route: 048
     Dates: start: 20090101
  3. ACETYLSALICYLIC ACID [Concomitant]
     Indication: MYOCARDIAL ISCHAEMIA
  4. BISOPROLOL [Concomitant]
     Indication: CARDIAC FAILURE
     Dosage: 1.25 MG, UNK
     Route: 048
     Dates: start: 20100401
  5. BISOPROLOL [Concomitant]
     Indication: MYOCARDIAL ISCHAEMIA
  6. FUROSEMIDE [Concomitant]
     Indication: CARDIAC FAILURE
     Dosage: 80 MG, UNK
     Route: 048
     Dates: start: 20090101
  7. FUROSEMIDE [Concomitant]
     Indication: MYOCARDIAL ISCHAEMIA
  8. ISOSORBIDE MONONITRATE [Concomitant]
     Indication: CARDIAC FAILURE
     Dosage: 90 MG, UNK
     Route: 048
     Dates: start: 20090101
  9. ISOSORBIDE MONONITRATE [Concomitant]
     Indication: MYOCARDIAL ISCHAEMIA
  10. PRAVASTATIN [Concomitant]
     Dosage: 20 MG, 1X/DAY
     Dates: end: 20100801
  11. RAMIPRIL [Concomitant]
     Indication: CARDIAC FAILURE
     Dosage: 2.5 MG, UNK
     Dates: start: 20100401
  12. RAMIPRIL [Concomitant]
     Indication: MYOCARDIAL ISCHAEMIA

REACTIONS (7)
  - ABDOMINAL DISTENSION [None]
  - DEPRESSION [None]
  - MALAISE [None]
  - MOBILITY DECREASED [None]
  - MYALGIA [None]
  - OEDEMA PERIPHERAL [None]
  - PNEUMONIA [None]
